FAERS Safety Report 9741067 (Version 1)
Quarter: 2013Q4

REPORT INFORMATION
  Report Type: Spontaneous
  Country: US (occurrence: US)
  Receive Date: 20131209
  Receipt Date: 20131209
  Transmission Date: 20140711
  Serious: Yes (Other)
  Sender: FDA-Public Use
  Company Number: US-TEVA-448621USA

PATIENT
  Sex: Male
  Weight: 91.71 kg

DRUGS (4)
  1. AZILECT [Suspect]
     Indication: PARKINSON^S DISEASE
     Dates: start: 20131030, end: 20131120
  2. MIRAPEX [Concomitant]
     Indication: PARKINSON^S DISEASE
  3. LASIX [Concomitant]
     Indication: FLUID OVERLOAD
  4. EXELON [Concomitant]
     Route: 062

REACTIONS (6)
  - Cardiac failure congestive [Recovering/Resolving]
  - Dyspnoea [Recovering/Resolving]
  - Mobility decreased [Recovering/Resolving]
  - Coordination abnormal [Recovering/Resolving]
  - Cough [Recovering/Resolving]
  - Drug intolerance [Recovering/Resolving]
